FAERS Safety Report 15172241 (Version 2)
Quarter: 2018Q4

REPORT INFORMATION
  Report Type: Spontaneous
  Country: US (occurrence: US)
  Receive Date: 20180720
  Receipt Date: 20181011
  Transmission Date: 20190204
  Serious: Yes (Disabling, Other)
  Sender: FDA-Public Use
  Company Number: US-REGENERON PHARMACEUTICALS, INC.-2018-30212

PATIENT

DRUGS (4)
  1. PREDNISONE. [Concomitant]
     Active Substance: PREDNISONE
     Indication: PRODUCT USED FOR UNKNOWN INDICATION
     Dosage: UNK
  2. ATROPINE. [Concomitant]
     Active Substance: ATROPINE
     Indication: PRODUCT USED FOR UNKNOWN INDICATION
     Dosage: UNK
  3. EYLEA [Suspect]
     Active Substance: AFLIBERCEPT
     Indication: NEOVASCULAR AGE-RELATED MACULAR DEGENERATION
     Dosage: 0.05 ML, OS, Q10WEEKS
     Route: 031
     Dates: start: 20170414, end: 20180708
  4. EYLEA [Suspect]
     Active Substance: AFLIBERCEPT
     Dosage: 0.05 ML, BOTH EYES
     Route: 031
     Dates: start: 20180706, end: 20180706

REACTIONS (5)
  - Endophthalmitis [Recovered/Resolved]
  - Hypotony of eye [Recovered/Resolved]
  - Blindness unilateral [Not Recovered/Not Resolved]
  - Wrong technique in product usage process [Unknown]
  - Retinal detachment [Unknown]

NARRATIVE: CASE EVENT DATE: 20180708
